FAERS Safety Report 23239692 (Version 1)
Quarter: 2023Q4

REPORT INFORMATION
  Report Type: Spontaneous
  Country: BR (occurrence: BR)
  Receive Date: 20231129
  Receipt Date: 20231129
  Transmission Date: 20240110
  Serious: Yes (Death, Hospitalization, Other)
  Sender: FDA-Public Use
  Company Number: BR-DSJP-DSE-2023-148351

PATIENT
  Sex: Female
  Weight: 56 kg

DRUGS (1)
  1. ENHERTU [Suspect]
     Active Substance: FAM-TRASTUZUMAB DERUXTECAN-NXKI
     Indication: Breast cancer female
     Dosage: 5.4 MG/KG, ADMINISTER EVERY 21 DAYS
     Route: 042

REACTIONS (4)
  - Pneumonitis [Fatal]
  - Febrile neutropenia [Unknown]
  - Respiratory failure [Unknown]
  - Bacterial infection [Unknown]
